FAERS Safety Report 23113130 (Version 3)
Quarter: 2023Q4

REPORT INFORMATION
  Report Type: Report from Study
  Country: US (occurrence: US)
  Receive Date: 20231027
  Receipt Date: 20231130
  Transmission Date: 20240109
  Serious: Yes (Hospitalization)
  Sender: FDA-Public Use
  Company Number: US-JNJFOC-20231056796

PATIENT
  Sex: Female
  Weight: 43 kg

DRUGS (3)
  1. INFLIXIMAB [Suspect]
     Active Substance: INFLIXIMAB
     Indication: Inflammatory bowel disease
     Route: 041
     Dates: start: 20090107, end: 20090331
  2. INFLIXIMAB [Suspect]
     Active Substance: INFLIXIMAB
     Route: 041
     Dates: start: 20170710, end: 20170929
  3. RINVOQ [Concomitant]
     Active Substance: UPADACITINIB
     Dosage: LAST ADMINISTRATION BEFORE THE EVENT ONSET WAS ON 02-SEP-2023
     Route: 065
     Dates: start: 202307

REACTIONS (3)
  - Gastrointestinal stoma complication [Recovered/Resolved]
  - Intestinal perforation [Recovered/Resolved]
  - Sepsis [Recovered/Resolved]

NARRATIVE: CASE EVENT DATE: 20230902
